FAERS Safety Report 15277624 (Version 2)
Quarter: 2018Q3

REPORT INFORMATION
  Report Type: Spontaneous
  Country: US (occurrence: US)
  Receive Date: 20180814
  Receipt Date: 20180828
  Transmission Date: 20181010
  Serious: No
  Sender: FDA-Public Use
  Company Number: US-BAYER-2018-150865

PATIENT

DRUGS (7)
  1. MENSTRIDOL [Suspect]
     Active Substance: NAPROXEN SODIUM
     Indication: IRRITABILITY
  2. MIDOL EXTENDED RELIEF [Suspect]
     Active Substance: NAPROXEN SODIUM
     Indication: IRRITABILITY
     Dosage: UNK
  3. MIDOL EXTENDED RELIEF [Suspect]
     Active Substance: NAPROXEN SODIUM
     Indication: PREMENSTRUAL SYNDROME
  4. ALEVE [Suspect]
     Active Substance: NAPROXEN SODIUM
     Indication: IRRITABILITY
  5. ALEVE [Suspect]
     Active Substance: NAPROXEN SODIUM
     Indication: PREMENSTRUAL SYNDROME
  6. MIDOL COMPLETE [Suspect]
     Active Substance: ACETAMINOPHEN\CAFFEINE\PYRILAMINE MALEATE
     Indication: IRRITABILITY
  7. MENSTRIDOL [Suspect]
     Active Substance: NAPROXEN SODIUM
     Indication: PREMENSTRUAL SYNDROME

REACTIONS (3)
  - Drug ineffective for unapproved indication [Unknown]
  - Drug effective for unapproved indication [Unknown]
  - Product use in unapproved indication [Unknown]
